FAERS Safety Report 12470895 (Version 2)
Quarter: 2016Q2

REPORT INFORMATION
  Report Type: Spontaneous
  Country: JP (occurrence: JP)
  Receive Date: 20160616
  Receipt Date: 20160629
  Transmission Date: 20160815
  Serious: Yes (Other)
  Sender: FDA-Public Use
  Company Number: JP-ALVOGEN-2016-ALVOGEN-025128

PATIENT
  Age: 76 Year
  Sex: Female

DRUGS (3)
  1. TENORMIN [Suspect]
     Active Substance: ATENOLOL
     Indication: PRODUCT USED FOR UNKNOWN INDICATION
     Dosage: 25 UNK DOSE UNKNOWN
     Route: 048
     Dates: start: 2013
  2. TENORMIN [Suspect]
     Active Substance: ATENOLOL
     Indication: PRODUCT USED FOR UNKNOWN INDICATION
     Dosage: DOSE TEXT: 25 UNK 0.2 DF TWO TIMES A DAY IN MORINIG AND EVENING
     Route: 048
  3. TENORMIN [Suspect]
     Active Substance: ATENOLOL
     Indication: PRODUCT USED FOR UNKNOWN INDICATION
     Dosage: 25 UNK DOSE UNKNOWN
     Route: 048

REACTIONS (6)
  - Limb discomfort [Unknown]
  - Peripheral nerve palsy [Unknown]
  - Drug dose omission [Unknown]
  - Fall [Unknown]
  - Chest discomfort [Unknown]
  - Prescribed underdose [Unknown]
